FAERS Safety Report 25528192 (Version 1)
Quarter: 2025Q3

REPORT INFORMATION
  Report Type: Spontaneous
  Country: EU (occurrence: EU)
  Receive Date: 20250708
  Receipt Date: 20250708
  Transmission Date: 20251020
  Serious: Yes (Other)
  Sender: RANBAXY
  Company Number: EU-SUN PHARMACEUTICAL INDUSTRIES LTD-2025R1-515137

PATIENT
  Age: 80 Year
  Sex: Female

DRUGS (3)
  1. PROPAFENONE [Suspect]
     Active Substance: PROPAFENONE
     Indication: Atrial fibrillation
     Dosage: 150 MILLIGRAM, QD
     Route: 065
  2. ACENOCOUMAROL [Suspect]
     Active Substance: ACENOCOUMAROL
     Indication: Atrial fibrillation
     Route: 065
  3. TRIMETAZIDINE [Suspect]
     Active Substance: TRIMETAZIDINE
     Indication: Atrial fibrillation
     Dosage: 35 MILLIGRAM, QD
     Route: 065

REACTIONS (1)
  - Therapy cessation [Unknown]
